FAERS Safety Report 19014957 (Version 1)
Quarter: 2021Q1

REPORT INFORMATION
  Report Type: Report from Study
  Country: None (occurrence: US)
  Receive Date: 20210317
  Receipt Date: 20210317
  Transmission Date: 20210420
  Serious: Yes (Hospitalization)
  Sender: FDA-Public Use
  Company Number: US-ABBVIE-21K-163-3785090-00

PATIENT
  Sex: Male
  Weight: 107.5 kg

DRUGS (18)
  1. OXYCODONE [Concomitant]
     Active Substance: OXYCODONE
     Indication: PAIN
     Dosage: 5 MG 1 TABLET ORAL, Q3H PRN
     Route: 048
     Dates: start: 20210212
  2. MAGIC MOUTHWASH [Concomitant]
     Active Substance: DIPHENHYDRAMINE HYDROCHLORIDE\LIDOCAINE HYDROCHLORIDE\NYSTATIN
     Indication: PAIN
  3. OXYCODONE [Concomitant]
     Active Substance: OXYCODONE
     Indication: PAIN
     Dosage: 10 MG? 2 TABLET(S),ORAL, Q3H, PRN
     Route: 048
     Dates: start: 20210214
  4. ONDANSETRON [Concomitant]
     Active Substance: ONDANSETRON
     Indication: PRODUCT USED FOR UNKNOWN INDICATION
     Dosage: 3 TAB ONCE DAY 1 TO 10
     Route: 048
     Dates: start: 20210210, end: 20210219
  5. LOPERAMIDE [Concomitant]
     Active Substance: LOPERAMIDE
     Indication: DIARRHOEA
     Dosage: 2 MG 1 CAPSULE(S) ORAL, QID, PRN
     Route: 048
     Dates: start: 20210203
  6. LEVOFLOXACIN. [Concomitant]
     Active Substance: LEVOFLOXACIN
     Indication: DIARRHOEA
     Dosage: 500 MG? 1 TABLET(S), Q24H 30 TAB
     Route: 048
     Dates: start: 20210110, end: 2021
  7. LEVOFLOXACIN. [Concomitant]
     Active Substance: LEVOFLOXACIN
     Dosage: 500 MG? 2 TABLET(S),  Q24H
     Route: 048
     Dates: start: 20210202
  8. VENCLEXTA [Suspect]
     Active Substance: VENETOCLAX
     Indication: ACUTE MYELOID LEUKAEMIA
     Dosage: 2 TABLETS WITH BREAKFAST OR DAY 1 TO DAY 21 OF EACH CYCLE., 42 TABLETS, REFILLS 6
     Route: 048
     Dates: start: 20210212
  9. MAGIC MOUTHWASH [Concomitant]
     Active Substance: DIPHENHYDRAMINE HYDROCHLORIDE\LIDOCAINE HYDROCHLORIDE\NYSTATIN
     Indication: ORAL PAIN
     Dosage: 5 ML UD SWISH AND SWALLOW, QID, PRN
     Route: 048
     Dates: start: 20210214
  10. NORMAL SALINE [Concomitant]
     Active Substance: SODIUM CHLORIDE
     Indication: PRODUCT USED FOR UNKNOWN INDICATION
     Route: 042
     Dates: start: 20210210, end: 20210220
  11. DEXAMETHASONE. [Concomitant]
     Active Substance: DEXAMETHASONE
     Indication: PRODUCT USED FOR UNKNOWN INDICATION
     Dosage: ONCE DAY 1 TO 10
     Route: 048
     Dates: start: 20210210, end: 20210219
  12. DACOGEN [Concomitant]
     Active Substance: DECITABINE
     Indication: PRODUCT USED FOR UNKNOWN INDICATION
     Dosage: 109 ML/HR INFUSE OVER 1 HOUR DAY 1 TO 10
     Route: 042
     Dates: start: 20210210, end: 20210219
  13. ALLOPURINOL. [Concomitant]
     Active Substance: ALLOPURINOL
     Indication: PRODUCT USED FOR UNKNOWN INDICATION
     Dosage: 109 ML/HR INFUSE OVER 1 HOUR DAY 1 TO 10
     Route: 048
     Dates: start: 20210212
  14. ACYCLOVIR. [Concomitant]
     Active Substance: ACYCLOVIR
     Indication: PRODUCT USED FOR UNKNOWN INDICATION
     Dosage: 400 MG 1 TABLET(S), ORAL, BID, 60 TABLETS
     Route: 048
     Dates: start: 20210110, end: 2021
  15. FLUCONAZOLE. [Concomitant]
     Active Substance: FLUCONAZOLE
     Dosage: 400 MG 2 TABLETS ORAL, DAILY QAM
     Route: 048
     Dates: start: 20210210
  16. PROCHLORPERAZINE. [Concomitant]
     Active Substance: PROCHLORPERAZINE
     Indication: NAUSEA
     Dosage: 10 MG? 2 ML INJECTION, SLOW IV PUSH Q6H?INTERVAL, PRN FOR NAUSEA
     Route: 042
  17. ACYCLOVIR. [Concomitant]
     Active Substance: ACYCLOVIR
     Dosage: 400 G? 0.5 TABLET(S), ORAL BID
     Route: 048
     Dates: start: 20210123
  18. FLUCONAZOLE. [Concomitant]
     Active Substance: FLUCONAZOLE
     Indication: PRODUCT USED FOR UNKNOWN INDICATION
     Dosage: 400 MG 2 TABLETS ORAL, DAILY
     Route: 048
     Dates: start: 20210110, end: 20210113

REACTIONS (3)
  - Off label use [Unknown]
  - Incoherent [Unknown]
  - Lung disorder [Unknown]

NARRATIVE: CASE EVENT DATE: 2021
